FAERS Safety Report 7148659-2 (Version None)
Quarter: 2010Q4

REPORT INFORMATION
  Report Type: 
  Country: None (occurrence: None)
  Receive Date: 20101122
  Receipt Date: 20101115
  Transmission Date: 20110411
  Serious: Yes (Other)
  Sender: FDA-Public Use
  Company Number: 2010SP060129

PATIENT
  Age: 64 Year
  Sex: Female
  Weight: 75 kg

DRUGS (4)
  1. NASONEX [Suspect]
     Indication: PRODUCT USED FOR UNKNOWN INDICATION
  2. CALCIUM [Concomitant]
  3. FYBOGEL [Concomitant]
  4. MAGNESIUM [Concomitant]

REACTIONS (3)
  - ARRHYTHMIA [None]
  - MALAISE [None]
  - PALPITATIONS [None]
